FAERS Safety Report 9890441 (Version 1)
Quarter: 2014Q1

REPORT INFORMATION
  Report Type: Spontaneous
  Country: US (occurrence: None)
  Receive Date: 20140210
  Receipt Date: 20140210
  Transmission Date: 20141002
  Serious: Yes (Disabling, Other)
  Sender: FDA-Public Use
  Company Number: None

PATIENT
  Age: 66 Year
  Sex: Female
  Weight: 81.65 kg

DRUGS (2)
  1. LORAZEPAM [Suspect]
     Indication: ANXIETY
     Route: 048
     Dates: start: 20140203
  2. WELLBUTRIN [Suspect]
     Indication: DEPRESSION
     Route: 048
     Dates: start: 20140203

REACTIONS (7)
  - Hypoaesthesia [None]
  - Pain in extremity [None]
  - Palpitations [None]
  - Dyspnoea [None]
  - Vision blurred [None]
  - Dry mouth [None]
  - Headache [None]
